FAERS Safety Report 14180458 (Version 3)
Quarter: 2018Q2

REPORT INFORMATION
  Report Type: Spontaneous
  Country: JP (occurrence: JP)
  Receive Date: 20171110
  Receipt Date: 20180612
  Transmission Date: 20180711
  Serious: Yes (Hospitalization)
  Sender: FDA-Public Use
  Company Number: JP-DSJP-DSJ-2017-153591AA

PATIENT

DRUGS (8)
  1. ARTIST [Concomitant]
     Active Substance: CARVEDILOL
     Indication: CEREBRAL INFARCTION
     Dosage: 5 MG, QD
     Route: 048
     Dates: end: 20171105
  2. SPIRONOLACTONE. [Concomitant]
     Active Substance: SPIRONOLACTONE
     Dosage: 25 MG, QD
     Route: 065
     Dates: start: 20171109, end: 20171128
  3. HALFDIGOXIN KY [Concomitant]
     Indication: CEREBRAL INFARCTION
     Dosage: 1.125 MG, QD
     Route: 048
     Dates: end: 20171105
  4. LIXIANA TABLETS 60MG [Suspect]
     Active Substance: EDOXABAN TOSYLATE
     Dosage: 30 MG, QD
     Route: 048
     Dates: start: 20171109, end: 20171128
  5. HALFDIGOXIN KY [Concomitant]
     Dosage: 0.125 MG, QD
     Route: 048
     Dates: start: 20171109, end: 20171111
  6. LIXIANA TABLETS 60MG [Suspect]
     Active Substance: EDOXABAN TOSYLATE
     Indication: ATRIAL FIBRILLATION
     Dosage: 30 MG, QD
     Route: 048
     Dates: end: 20171105
  7. ALDACTONE A [Concomitant]
     Active Substance: SPIRONOLACTONE
     Indication: CEREBRAL INFARCTION
     Dosage: 25 MG, QD
     Route: 048
     Dates: end: 20171105
  8. ARTIST [Concomitant]
     Active Substance: CARVEDILOL
     Dosage: 5 MG, QD
     Route: 048
     Dates: start: 20171109, end: 20171128

REACTIONS (1)
  - Cerebral infarction [Recovered/Resolved with Sequelae]

NARRATIVE: CASE EVENT DATE: 20171105
